FAERS Safety Report 10897907 (Version 1)
Quarter: 2015Q1

REPORT INFORMATION
  Report Type: Spontaneous
  Country: CH (occurrence: CH)
  Receive Date: 20150309
  Receipt Date: 20150309
  Transmission Date: 20150721
  Serious: Yes (Death, Other)
  Sender: FDA-Public Use
  Company Number: PHHY2014CH173236

PATIENT
  Age: 29 Year
  Sex: Male

DRUGS (12)
  1. GLYCOPYRROLATE. [Suspect]
     Active Substance: GLYCOPYRROLATE
     Indication: INCREASED UPPER AIRWAY SECRETION
     Dosage: 0.2 MG, Q8H
     Route: 058
  2. BACLOFEN. [Suspect]
     Active Substance: BACLOFEN
     Dosage: 15 MG, Q8H
     Route: 042
  3. VALPROIC ACID. [Suspect]
     Active Substance: VALPROIC ACID
     Indication: STATUS EPILEPTICUS
     Dosage: 300 MG, BID
     Route: 042
  4. BACLOFEN. [Suspect]
     Active Substance: BACLOFEN
     Indication: STATUS EPILEPTICUS
     Dosage: 10 MG, Q8H
     Route: 042
  5. MIDAZOLAM [Suspect]
     Active Substance: MIDAZOLAM\MIDAZOLAM HYDROCHLORIDE
     Dosage: 60 MG, QD
     Route: 042
  6. MIDAZOLAM [Suspect]
     Active Substance: MIDAZOLAM\MIDAZOLAM HYDROCHLORIDE
     Dosage: 0.5 MG, QH
     Route: 042
  7. MIDAZOLAM [Suspect]
     Active Substance: MIDAZOLAM\MIDAZOLAM HYDROCHLORIDE
     Dosage: 30 MG, QD
     Route: 042
  8. MIDAZOLAM [Suspect]
     Active Substance: MIDAZOLAM\MIDAZOLAM HYDROCHLORIDE
     Indication: STATUS EPILEPTICUS
     Dosage: 0.25 MG, QH
     Route: 042
  9. MORPHINE SANDOZ [Suspect]
     Active Substance: MORPHINE
     Dosage: 20 MG, Q4H
     Route: 058
  10. LEVETIRACETAM. [Suspect]
     Active Substance: LEVETIRACETAM
     Indication: STATUS EPILEPTICUS
     Dosage: 1000 MG, BID
     Route: 042
  11. MORPHINE SANDOZ [Suspect]
     Active Substance: MORPHINE
     Indication: PAIN
     Dosage: 2.5 MG, Q4H
     Route: 058
  12. MIDAZOLAM [Suspect]
     Active Substance: MIDAZOLAM\MIDAZOLAM HYDROCHLORIDE
     Dosage: 160 MG, QD
     Route: 042

REACTIONS (3)
  - Dyskinesia [Fatal]
  - No therapeutic response [Fatal]
  - Increased upper airway secretion [Fatal]

NARRATIVE: CASE EVENT DATE: 20140915
